FAERS Safety Report 9508293 (Version 1)
Quarter: 2013Q3

REPORT INFORMATION
  Report Type: Spontaneous
  Country: US (occurrence: US)
  Receive Date: 20130909
  Receipt Date: 20130909
  Transmission Date: 20140515
  Serious: No
  Sender: FDA-Public Use
  Company Number: US-PFIZER INC-2013256358

PATIENT
  Sex: Female

DRUGS (1)
  1. CARDURA XL [Suspect]
     Indication: HYPERTENSION
     Dosage: 2 MG, 1X/DAY
     Route: 048

REACTIONS (2)
  - Blood glucose decreased [Unknown]
  - Weight increased [Unknown]
